FAERS Safety Report 9405862 (Version 2)
Quarter: 2013Q3

REPORT INFORMATION
  Report Type: Spontaneous
  Country: CL (occurrence: CL)
  Receive Date: 20130717
  Receipt Date: 20130723
  Transmission Date: 20140515
  Serious: Yes (Hospitalization, Other)
  Sender: FDA-Public Use
  Company Number: CL-GLAXOSMITHKLINE-A1033248A

PATIENT
  Age: 42 Year
  Sex: Female

DRUGS (2)
  1. LAMICTAL [Suspect]
     Indication: BIPOLAR DISORDER
     Dosage: 100MG PER DAY
     Route: 048
     Dates: start: 201305, end: 201306
  2. SERTRALINE [Concomitant]
     Indication: DEPRESSION
     Dosage: 50MG UNKNOWN
     Route: 048

REACTIONS (2)
  - Oral mucosal blistering [Recovered/Resolved]
  - Erythema nodosum [Recovered/Resolved]
